FAERS Safety Report 24760048 (Version 2)
Quarter: 2024Q4

REPORT INFORMATION
  Report Type: Report from Study
  Country: ES (occurrence: ES)
  Receive Date: 20241220
  Receipt Date: 20241223
  Transmission Date: 20250114
  Serious: Yes (Hospitalization, Other)
  Sender: RADIUS PHARM
  Company Number: ES-RADIUS HEALTH INC.-2024ES010324

PATIENT
  Age: 74 Year
  Sex: Female

DRUGS (6)
  1. ABALOPARATIDE [Suspect]
     Active Substance: ABALOPARATIDE
     Indication: Osteoporosis
     Dosage: 1 DOSAGE FORM EVERY 1 DAY(S) 1INYEC/24H
     Route: 058
     Dates: start: 20241019, end: 20241119
  2. ABALOPARATIDE [Suspect]
     Active Substance: ABALOPARATIDE
     Dosage: 1 DOSAGE FORM EVERY 1 DAY(S) 1INJEC/24H
     Dates: start: 20241206
  3. ACETAMINOPHEN [Concomitant]
     Active Substance: ACETAMINOPHEN
     Indication: Pain
     Dosage: ON DEMAND WITH AN EPISODE OF PAIN
     Route: 048
  4. ACETAMINOPHEN [Concomitant]
     Active Substance: ACETAMINOPHEN
     Indication: Pain
  5. TRAMADOL [Concomitant]
     Active Substance: TRAMADOL
     Indication: Pain
     Dosage: ON DEMAND WITH AN EPISODE OF PAIN
     Route: 048
  6. DEXKETOPROFEN TROMETAMOL [Concomitant]
     Active Substance: DEXKETOPROFEN TROMETAMOL
     Indication: Pain
     Dosage: ON DEMAND WITH AN EPISODE OF PAIN
     Route: 048

REACTIONS (3)
  - Lower limb fracture [Recovered/Resolved]
  - Deep vein thrombosis [Recovered/Resolved]
  - Pulmonary embolism [Recovered/Resolved]

NARRATIVE: CASE EVENT DATE: 20241119
